FAERS Safety Report 9230835 (Version 3)
Quarter: 2014Q1

REPORT INFORMATION
  Report Type: Spontaneous
  Country: IT (occurrence: IT)
  Receive Date: 20130415
  Receipt Date: 20140219
  Transmission Date: 20141002
  Serious: Yes (Hospitalization)
  Sender: FDA-Public Use
  Company Number: PHHY2013IT035512

PATIENT
  Age: 81 Year
  Sex: Female

DRUGS (7)
  1. CLOZAPIN HEXAL [Suspect]
     Dosage: 100 MG DAILY
     Route: 048
     Dates: start: 20130331, end: 20130331
  2. HALDOL [Suspect]
     Dosage: 1 DF, QD
     Route: 048
     Dates: start: 20130331, end: 20130331
  3. LOSAZID [Concomitant]
     Dosage: 1 DF
     Route: 048
  4. TAVOR (LORAZEPAM) [Concomitant]
     Dosage: 1 DF
     Route: 048
  5. LUCEN [Concomitant]
     Dosage: 1 DF
     Route: 048
  6. NORVASC [Concomitant]
     Dosage: 1 DF
     Route: 048
  7. CARDIOASPIRIN [Concomitant]
     Dosage: 1 DF
     Route: 048

REACTIONS (3)
  - Miosis [Recovered/Resolved]
  - Speech disorder developmental [Recovered/Resolved]
  - Psychomotor hyperactivity [Recovered/Resolved]
